FAERS Safety Report 10475783 (Version 2)
Quarter: 2016Q3

REPORT INFORMATION
  Report Type: Spontaneous
  Country: US (occurrence: US)
  Receive Date: 20140925
  Receipt Date: 20160705
  Transmission Date: 20161109
  Serious: No
  Sender: FDA-Public Use
  Company Number: US-GLAXOSMITHKLINE-A1075949A

PATIENT
  Sex: Female

DRUGS (1)
  1. RYTHMOL SR [Suspect]
     Active Substance: PROPAFENONE HYDROCHLORIDE
     Indication: ATRIAL FIBRILLATION
     Dosage: 425 MG, BID
     Route: 048

REACTIONS (6)
  - Dermatitis diaper [Recovering/Resolving]
  - Amnesia [Not Recovered/Not Resolved]
  - Pain in extremity [Recovering/Resolving]
  - Urinary incontinence [Recovering/Resolving]
  - Vein disorder [Recovering/Resolving]
  - Muscle spasms [Recovering/Resolving]

NARRATIVE: CASE EVENT DATE: 2015
